FAERS Safety Report 8620707-X (Version None)
Quarter: 2012Q3

REPORT INFORMATION
  Report Type: 
  Country: None (occurrence: None)
  Receive Date: 20120824
  Receipt Date: 20120810
  Transmission Date: 20120928
  Serious: Yes (Life-Threatening, Hospitalization)
  Sender: FDA-Public Use
  Company Number: NO-BRISTOL-MYERS SQUIBB COMPANY-16901498

PATIENT
  Age: 51 Year
  Sex: Female

DRUGS (1)
  1. IRBESARTAN [Suspect]
     Route: 048
     Dates: start: 20120601

REACTIONS (3)
  - ROAD TRAFFIC ACCIDENT [None]
  - FATIGUE [None]
  - SOMNOLENCE [None]
